FAERS Safety Report 6834838-8 (Version None)
Quarter: 2010Q3

REPORT INFORMATION
  Report Type: 
  Country: None (occurrence: None)
  Receive Date: 20100712
  Receipt Date: 20070424
  Transmission Date: 20110219
  Serious: No
  Sender: FDA-Public Use
  Company Number: US-PFIZER INC-2007034441

PATIENT
  Sex: Female
  Weight: 44.45 kg

DRUGS (7)
  1. CHANTIX [Suspect]
     Indication: SMOKING CESSATION THERAPY
     Dates: start: 20070411
  2. ZESTRIL [Concomitant]
     Indication: HYPERTENSION
  3. GLUCOPHAGE [Concomitant]
  4. DILTIAZEM [Concomitant]
  5. ZOCOR [Concomitant]
  6. LASIX [Concomitant]
  7. PERCOCET [Concomitant]

REACTIONS (2)
  - NAUSEA [None]
  - VOMITING [None]
